FAERS Safety Report 8482811-9 (Version None)
Quarter: 2012Q3

REPORT INFORMATION
  Report Type: 
  Country: None (occurrence: None)
  Receive Date: 20120702
  Receipt Date: 20120621
  Transmission Date: 20120928
  Serious: Yes (Other)
  Sender: FDA-Public Use
  Company Number: US-ASTRAZENECA-2010SE13242

PATIENT
  Age: 46 Year
  Sex: Female
  Weight: 50.3 kg

DRUGS (5)
  1. SEROQUEL [Suspect]
     Indication: INSOMNIA
     Route: 048
  2. SEROQUEL [Suspect]
     Route: 048
  3. SEROQUEL [Suspect]
     Route: 048
  4. SEROQUEL [Suspect]
     Route: 048
  5. OTHER SLEEP MEDICATION [Concomitant]

REACTIONS (20)
  - SUICIDAL IDEATION [None]
  - MALAISE [None]
  - MENTAL DISORDER [None]
  - ANXIETY [None]
  - AGGRESSION [None]
  - PANIC REACTION [None]
  - INSOMNIA [None]
  - OROPHARYNGEAL PAIN [None]
  - EMOTIONAL DISORDER [None]
  - DEPRESSION [None]
  - STRESS [None]
  - SEDATION [None]
  - RESTLESS LEGS SYNDROME [None]
  - SHOCK [None]
  - DRUG DOSE OMISSION [None]
  - ADVERSE EVENT [None]
  - CRYING [None]
  - VOMITING [None]
  - MOOD SWINGS [None]
  - FATIGUE [None]
